FAERS Safety Report 16260566 (Version 3)
Quarter: 2019Q3

REPORT INFORMATION
  Report Type: Spontaneous
  Country: US (occurrence: US)
  Receive Date: 20190501
  Receipt Date: 20190717
  Transmission Date: 20191004
  Serious: Yes (Hospitalization)
  Sender: FDA-Public Use
  Company Number: US-PFIZER INC-2019179529

PATIENT
  Age: 65 Year
  Sex: Female
  Weight: 50.79 kg

DRUGS (13)
  1. ATARAX [Concomitant]
     Active Substance: HYDROXYZINE HYDROCHLORIDE
     Dosage: 10 MG, 1X/DAY (TAKE 1 TAB BY MOUTH EVERY NIGHT AT BED TIME)
     Route: 048
  2. HYZAAR [Concomitant]
     Active Substance: HYDROCHLOROTHIAZIDE\LOSARTAN POTASSIUM
     Dosage: 1 DF, 1X/DAY
     Route: 048
  3. DETROL LA [Concomitant]
     Active Substance: TOLTERODINE TARTRATE
     Dosage: 4 MG, 1X/DAY
     Route: 048
  4. LYRICA [Suspect]
     Active Substance: PREGABALIN
     Indication: FIBROMYALGIA
     Dosage: 10 MG, 2X/DAY
     Dates: start: 20190418
  5. CALTRATE 600+D [Concomitant]
     Dosage: 600 MG, 2X/DAY (TAKE 1 TAB BY MOUTH TWICE PER DAY WITH BREAKFAST AND DINNER)
     Route: 048
  6. ONE TOUCH [Concomitant]
     Active Substance: DEXTROSE
     Dosage: UNK (USE 1 TWICE DAILY, AS NEEDED)
  7. AUBAGIO [Suspect]
     Active Substance: TERIFLUNOMIDE
     Dosage: 14 MG, 1X/DAY
     Dates: start: 20190418
  8. BACTROBAN [Concomitant]
     Active Substance: MUPIROCIN\MUPIROCIN CALCIUM
     Dosage: 2 %, 1X/DAY
     Route: 061
  9. LIPITOR [Concomitant]
     Active Substance: ATORVASTATIN CALCIUM
     Indication: BLOOD CHOLESTEROL
     Dosage: 10 MG, 1X/DAY
     Route: 048
  10. LOTRISONE [Concomitant]
     Active Substance: BETAMETHASONE DIPROPIONATE\CLOTRIMAZOLE
     Dosage: UNK UNK, 1X/DAY
     Route: 061
  11. AUBAGIO [Suspect]
     Active Substance: TERIFLUNOMIDE
     Dosage: 7 MG, 1X/DAY
     Route: 048
  12. LYRICA [Concomitant]
     Active Substance: PREGABALIN
     Dosage: 100 MG, 3X/DAY
     Route: 048
  13. JANUMET [Concomitant]
     Active Substance: METFORMIN HYDROCHLORIDE\SITAGLIPTIN PHOSPHATE
     Dosage: UNK UNK, 2X/DAY (TAKE 1 TAB BY MOUTH TWICE PER DAY WITH BREAKFAST AND DINNER)
     Route: 048

REACTIONS (2)
  - Dysarthria [Recovered/Resolved]
  - Blood glucose increased [Not Recovered/Not Resolved]

NARRATIVE: CASE EVENT DATE: 2019
